FAERS Safety Report 19422244 (Version 5)
Quarter: 2021Q4

REPORT INFORMATION
  Report Type: Report from Study
  Country: US (occurrence: US)
  Receive Date: 20210616
  Receipt Date: 20211211
  Transmission Date: 20220303
  Serious: Yes (Other)
  Sender: FDA-Public Use
  Company Number: NVSC2021US126087

PATIENT
  Age: 77 Year
  Sex: Male

DRUGS (1)
  1. ENTRESTO [Suspect]
     Active Substance: SACUBITRIL\VALSARTAN
     Indication: Cardiac failure
     Dosage: 100 MG, BID
     Route: 048
     Dates: start: 20200801

REACTIONS (10)
  - Loss of consciousness [Recovering/Resolving]
  - Fall [Recovering/Resolving]
  - Blood phosphorus increased [Unknown]
  - Tremor [Unknown]
  - Arteriovenous fistula site complication [Unknown]
  - Amnesia [Recovering/Resolving]
  - Gait disturbance [Unknown]
  - Musculoskeletal discomfort [Unknown]
  - Asthenia [Unknown]
  - Product dose omission issue [Unknown]

NARRATIVE: CASE EVENT DATE: 20210609
